FAERS Safety Report 4966710-2 (Version None)
Quarter: 2006Q1

REPORT INFORMATION
  Report Type: 
  Country: None (occurrence: None)
  Receive Date: 20060201
  Receipt Date: 20051207
  Transmission Date: 20060701
  Serious: No
  Sender: FDA-Public Use
  Company Number: 2005PV005528

PATIENT
  Age: 45 Year
  Sex: Male
  Weight: 65.7716 kg

DRUGS (8)
  1. BYETTA [Suspect]
     Indication: DIABETES MELLITUS
     Dosage: SEE IMAGE
     Route: 058
     Dates: start: 20050801, end: 20050901
  2. BYETTA [Suspect]
     Indication: DIABETES MELLITUS
     Dosage: SEE IMAGE
     Route: 058
     Dates: start: 20050901, end: 20051101
  3. BYETTA [Suspect]
     Indication: DIABETES MELLITUS
     Dosage: SEE IMAGE
     Route: 058
     Dates: start: 20051202
  4. LANTUS [Concomitant]
  5. NOVOLIN N [Concomitant]
  6. HUMALOG [Concomitant]
  7. ALTACE [Concomitant]
  8. VYTORIN [Concomitant]

REACTIONS (4)
  - NAUSEA [None]
  - PRURITUS [None]
  - URTICARIA [None]
  - URTICARIA PAPULAR [None]
